FAERS Safety Report 15578398 (Version 4)
Quarter: 2019Q1

REPORT INFORMATION
  Report Type: Report from Study
  Country: ZA (occurrence: ZA)
  Receive Date: 20181102
  Receipt Date: 20190220
  Transmission Date: 20190417
  Serious: Yes (Hospitalization)
  Sender: FDA-Public Use
  Company Number: ZA-ROCHE-2207148

PATIENT
  Age: 68 Year
  Sex: Male
  Weight: 84 kg

DRUGS (17)
  1. CISPLATIN. [Suspect]
     Active Substance: CISPLATIN
     Indication: TRANSITIONAL CELL CARCINOMA
     Dosage: ON 05/APR/2018, HE RECEIVED THE MOST RECENT DOSE OF CISPLATIN (105 MG) PRIOR TO ADVERSE EVENT (AE) O
     Route: 042
     Dates: start: 20180215
  2. LYRICA [Concomitant]
     Active Substance: PREGABALIN
     Indication: PAIN IN EXTREMITY
     Route: 048
     Dates: start: 20180814, end: 20180927
  3. ATEZOLIZUMAB. [Suspect]
     Active Substance: ATEZOLIZUMAB
     Indication: TRANSITIONAL CELL CARCINOMA
     Dosage: ON 27/SEP/2018, HE RECEIVED THE MOST RECENT DOSE OF ATEZOLIZUMAB PRIOR TO ADVERSE EVENT (AE) ONSET.
     Route: 042
     Dates: start: 20180215
  4. GEMCITABINE [Suspect]
     Active Substance: GEMCITABINE\GEMCITABINE HYDROCHLORIDE
     Indication: TRANSITIONAL CELL CARCINOMA
     Dosage: ON 14/JUN/2018, HE RECEIVED THE MOST RECENT DOSE OF GEMCITABINE (700 MG/M^2) PRIOR TO ONSET OF WORSE
     Route: 042
     Dates: start: 20180215
  5. LANTUS [Concomitant]
     Active Substance: INSULIN GLARGINE
     Indication: DIABETES MELLITUS
     Route: 058
  6. LIPITOR [Concomitant]
     Active Substance: ATORVASTATIN CALCIUM
     Indication: HYPERCHOLESTEROLAEMIA
     Route: 048
  7. LOKIT (SOUTH AFRICA) [Concomitant]
     Dosage: PREVENTION OF REFLUX OR ULCER
     Route: 048
     Dates: start: 20180216
  8. CIPROBAY [Concomitant]
     Active Substance: CIPROFLOXACIN
     Indication: URINARY TRACT INFECTION
     Route: 048
     Dates: start: 20181022, end: 20181029
  9. PHARMAPRESS (SOUTH AFRICA) [Concomitant]
     Indication: HYPERTENSION
     Route: 048
  10. TREPILINE [Concomitant]
     Active Substance: AMITRIPTYLINE
     Indication: PAIN IN EXTREMITY
     Route: 048
     Dates: start: 20180814, end: 20180927
  11. GASTRIWIN [Concomitant]
     Active Substance: PANTOPRAZOLE SODIUM
     Route: 042
     Dates: start: 20181025, end: 20181029
  12. PHARMAPRESS CO [Concomitant]
     Active Substance: ENALAPRIL MALEATE\HYDROCHLOROTHIAZIDE
     Indication: HYPERTENSION
     Dosage: 1 TABLET
     Route: 048
  13. HUMALOG [Concomitant]
     Active Substance: INSULIN LISPRO
     Indication: DIABETES MELLITUS
     Route: 058
  14. BISOPROLOL FUMARATE. [Concomitant]
     Active Substance: BISOPROLOL FUMARATE
     Indication: HYPERTENSION
     Route: 048
  15. XARELTO [Concomitant]
     Active Substance: RIVAROXABAN
     Indication: VENOUS THROMBOSIS
     Route: 048
     Dates: start: 20180420
  16. BACTRIM [Concomitant]
     Active Substance: SULFAMETHOXAZOLE\TRIMETHOPRIM
     Indication: URINARY TRACT INFECTION
     Route: 048
     Dates: start: 20181116, end: 20181120
  17. GENTAMYCIN [Concomitant]
     Active Substance: GENTAMICIN
     Indication: URINARY TRACT INFECTION
     Route: 042
     Dates: start: 20181109, end: 20181112

REACTIONS (2)
  - Urinary tract obstruction [Recovered/Resolved]
  - Renal impairment [Not Recovered/Not Resolved]

NARRATIVE: CASE EVENT DATE: 20181018
